FAERS Safety Report 24375500 (Version 3)
Quarter: 2025Q3

REPORT INFORMATION
  Report Type: Spontaneous
  Country: CA (occurrence: CA)
  Receive Date: 20240928
  Receipt Date: 20250919
  Transmission Date: 20251021
  Serious: Yes (Other)
  Sender: AUROBINDO
  Company Number: CA-AUROBINDO-AUR-APL-2024-047115

PATIENT
  Age: 58 Year
  Sex: Female

DRUGS (4)
  1. APIXABAN [Interacting]
     Active Substance: APIXABAN
     Indication: Tumour thrombosis
     Dosage: 5 MILLIGRAM, TWO TIMES A DAY (1 EVERY 5 DAYS)
     Route: 048
  2. APIXABAN [Interacting]
     Active Substance: APIXABAN
     Indication: Embolism venous
  3. APREPITANT [Interacting]
     Active Substance: APREPITANT
     Indication: Nausea
     Route: 065
  4. APREPITANT [Interacting]
     Active Substance: APREPITANT
     Indication: Antiemetic supportive care

REACTIONS (4)
  - Gastrointestinal haemorrhage [Unknown]
  - Drug interaction [Unknown]
  - Disease recurrence [Unknown]
  - Drug ineffective [Unknown]
